FAERS Safety Report 18600248 (Version 2)
Quarter: 2020Q4

REPORT INFORMATION
  Report Type: Spontaneous
  Country: CL (occurrence: CL)
  Receive Date: 20201210
  Receipt Date: 20201222
  Transmission Date: 20210114
  Serious: No
  Sender: FDA-Public Use
  Company Number: CL-PFIZER INC-2020481211

PATIENT
  Age: 38 Year
  Sex: Female

DRUGS (1)
  1. SAYANA PRESS [Suspect]
     Active Substance: MEDROXYPROGESTERONE\MEDROXYPROGESTERONE ACETATE
     Indication: CONTRACEPTION
     Dosage: 1 DF, EVERY 3 MONTHS
     Route: 058
     Dates: start: 20201203

REACTIONS (4)
  - Device difficult to use [Unknown]
  - Needle issue [Unknown]
  - Wrong technique in device usage process [Unknown]
  - Intentional product use issue [Unknown]

NARRATIVE: CASE EVENT DATE: 20201203
